FAERS Safety Report 12261602 (Version 3)
Quarter: 2016Q2

REPORT INFORMATION
  Report Type: Spontaneous
  Country: US (occurrence: US)
  Receive Date: 20160412
  Receipt Date: 20160521
  Transmission Date: 20160815
  Serious: Yes (Hospitalization)
  Sender: FDA-Public Use
  Company Number: US-AUROBINDO-AUR-APL-2016-04486

PATIENT
  Age: 16 Year
  Sex: Male

DRUGS (5)
  1. QUETIAPINE. [Suspect]
     Active Substance: QUETIAPINE
     Dosage: 100 UNK, UNK
     Route: 065
  2. ALPRAZOLAM. [Suspect]
     Active Substance: ALPRAZOLAM
     Indication: PRODUCT USED FOR UNKNOWN INDICATION
     Dosage: 0.5 MG, FOUR 0.5MG ALPRAZOLAM TABLETS
     Route: 048
  3. QUETIAPINE. [Suspect]
     Active Substance: QUETIAPINE
     Dosage: 400 MG, 3 TIMES A DAY
     Route: 065
  4. QUETIAPINE. [Suspect]
     Active Substance: QUETIAPINE
     Dosage: 300 MG, ONCE A DAY
     Route: 065
  5. QUETIAPINE. [Suspect]
     Active Substance: QUETIAPINE
     Indication: INSOMNIA
     Dosage: 50 MG, UNK
     Route: 065

REACTIONS (7)
  - Somnolence [Unknown]
  - Drug abuse [Not Recovered/Not Resolved]
  - Sedation [Unknown]
  - Unresponsive to stimuli [Not Recovered/Not Resolved]
  - Dysphoria [Recovered/Resolved]
  - Drug dependence [Not Recovered/Not Resolved]
  - Palpitations [Not Recovered/Not Resolved]
